FAERS Safety Report 16465354 (Version 2)
Quarter: 2019Q4

REPORT INFORMATION
  Report Type: Report from Study
  Country: US (occurrence: US)
  Receive Date: 20190621
  Receipt Date: 20191028
  Transmission Date: 20200122
  Serious: Yes (Hospitalization)
  Sender: FDA-Public Use
  Company Number: US-ACTELION-A-US2019-190217

PATIENT
  Age: 42 Year
  Sex: Female
  Weight: 81.63 kg

DRUGS (2)
  1. VELETRI [Suspect]
     Active Substance: EPOPROSTENOL
     Dosage: 32 NG/KG, PER MIN
     Route: 042
  2. VELETRI [Suspect]
     Active Substance: EPOPROSTENOL
     Indication: PULMONARY HYPERTENSION
     Dosage: 30 NG/KG, PER MIN
     Route: 042

REACTIONS (10)
  - Infection [Unknown]
  - Catheter management [Unknown]
  - Constipation [Unknown]
  - Pain in jaw [Unknown]
  - Dyspnoea exertional [Unknown]
  - Vascular device infection [Unknown]
  - Dyspnoea at rest [Unknown]
  - Catheter site haemorrhage [Unknown]
  - Arthralgia [Unknown]
  - Flushing [Unknown]

NARRATIVE: CASE EVENT DATE: 20190607
